FAERS Safety Report 20612009 (Version 1)
Quarter: 2022Q1

REPORT INFORMATION
  Report Type: Spontaneous
  Country: DE (occurrence: DE)
  Receive Date: 20220318
  Receipt Date: 20220318
  Transmission Date: 20220423
  Serious: Yes (Life-Threatening, Other)
  Sender: FDA-Public Use
  Company Number: DE-AstraZeneca-2022A095638

PATIENT
  Age: 66 Year

DRUGS (8)
  1. AMLODIPINE BESYLATE [Suspect]
     Active Substance: AMLODIPINE BESYLATE
  2. HYDROCHLOROTHIAZIDE [Suspect]
     Active Substance: HYDROCHLOROTHIAZIDE
  3. DAPAGLIFLOZIN [Suspect]
     Active Substance: DAPAGLIFLOZIN
     Dosage: 10 MG
  4. ASPIRIN [Suspect]
     Active Substance: ASPIRIN
  5. CANDESARTAN [Suspect]
     Active Substance: CANDESARTAN
  6. SITAGLIPTIN [Suspect]
     Active Substance: SITAGLIPTIN
  7. ROSUVASTATIN [Suspect]
     Active Substance: ROSUVASTATIN
     Dosage: 20 MG
  8. BISOPROLOL [Suspect]
     Active Substance: BISOPROLOL

REACTIONS (2)
  - Chronic kidney disease [Unknown]
  - Acute myocardial infarction [Unknown]
